FAERS Safety Report 4514039-9 (Version None)
Quarter: 2004Q4

REPORT INFORMATION
  Report Type: 
  Country: None (occurrence: None)
  Receive Date: 20041124
  Receipt Date: 20041109
  Transmission Date: 20050328
  Serious: Yes (Hospitalization, Other)
  Sender: FDA-Public Use
  Company Number: USA041080018

PATIENT
  Age: 76 Year
  Sex: Female
  Weight: 54 kg

DRUGS (4)
  1. FORTEO [Suspect]
     Indication: OSTEOPOROSIS
     Dosage: 20 UG/1 DAY
     Dates: start: 20040828, end: 20040914
  2. CALCIUM [Concomitant]
  3. VITAMIN D [Concomitant]
  4. SYNTHROID [Concomitant]

REACTIONS (3)
  - AMNESIA [None]
  - DISORIENTATION [None]
  - PHARMACEUTICAL PRODUCT COMPLAINT [None]
